FAERS Safety Report 24009325 (Version 2)
Quarter: 2024Q3

REPORT INFORMATION
  Report Type: Spontaneous
  Country: US (occurrence: US)
  Receive Date: 20240625
  Receipt Date: 20240710
  Transmission Date: 20241016
  Serious: Yes (Hospitalization, Other)
  Sender: BRISTOL MYERS SQUIBB
  Company Number: US-BRISTOL-MYERS SQUIBB COMPANY-2024-099349

PATIENT
  Age: 89 Year
  Sex: Male

DRUGS (21)
  1. REVLIMID [Suspect]
     Active Substance: LENALIDOMIDE
     Indication: Myelodysplastic syndrome
     Dosage: FREQUENCY: ONE CAPSULE EVERY 3 DAYS D1-21 EVERY 28 DAYS
     Route: 048
     Dates: start: 20240525
  2. PROCRIT [Suspect]
     Active Substance: ERYTHROPOIETIN
     Indication: Product used for unknown indication
     Dosage: 2,000 UNIT/ML, 0.04 ML (80 UNITS) 1 (ONE) TIME PER WEEK.
  3. ALBUTEROL [Concomitant]
     Active Substance: ALBUTEROL
     Indication: Product used for unknown indication
     Dosage: 2.5 MG /3 ML (0.083 %), FREQUENCY: TAKE 3 ML (2.5 MG) BY NEBULIZATION EVERY 4 (FOUR) HOURS IF NEEDED
     Dates: start: 20231030
  4. ASCORBIC ACID [Concomitant]
     Active Substance: ASCORBIC ACID
     Indication: Product used for unknown indication
     Dosage: TAKE 0.5 TABLETS (500 MG) BY MOUTH IN THE MORNING. - ORAL
     Route: 048
     Dates: start: 20191109
  5. ASTELIN [Concomitant]
     Active Substance: AZELASTINE HYDROCHLORIDE
     Indication: Product used for unknown indication
     Dosage: ADMINISTER 1 SPRAY INTO EACH NOSTRIL IN THE MORNING AND AT BEDTIME. USE IN EACH NOSTRIL AS DIRECTED
     Dates: start: 20240515
  6. CALCIUM CARBONATE [Concomitant]
     Active Substance: CALCIUM CARBONATE
     Indication: Product used for unknown indication
     Dosage: (CALCIUM 500 ORAL), TAKE 600 MG BY MOUTH IN THE MORNING. - ORAL
     Route: 048
  7. COREG [Concomitant]
     Active Substance: CARVEDILOL
     Indication: Product used for unknown indication
     Dosage: TAKE 1 TABLET (6.25 MG) BY MOUTH WITH BREAKFAST AND WITH EVENING MEAL. - ORAL
     Route: 048
     Dates: start: 20231220
  8. COREG [Concomitant]
     Active Substance: CARVEDILOL
     Dosage: TAKE 1 TABLET (3.125 MG) BY MOUTH IN THE MORNING. - ORAL
     Route: 048
     Dates: start: 20240529
  9. VITAMIN B12 [Concomitant]
     Active Substance: CYANOCOBALAMIN
     Indication: Product used for unknown indication
     Dosage: TAKE 100 MCG BY MOUTH IN THE MORNING. - ORAL
     Route: 048
  10. LASIX [Concomitant]
     Active Substance: FUROSEMIDE
     Indication: Product used for unknown indication
     Dosage: TAKE BY MOUTH IN THE MORNING AND AT BEDTIME. - ORAL
     Route: 048
     Dates: start: 20200804
  11. ATROVENT [Concomitant]
     Active Substance: IPRATROPIUM BROMIDE
     Indication: Product used for unknown indication
     Dosage: ADMINISTER 2 SPRAYS INTO EACH NOSTRIL EVERY 12 (TWELVE) HOURS. - EACH NOSTRIL
     Dates: start: 20230809
  12. XALATAN [Concomitant]
     Active Substance: LATANOPROST
     Indication: Product used for unknown indication
     Dosage: ADMINISTER 0.005 DROPS INTO BOTH EYES 1 (ONE) TIME EACH DAY. - BOTH EYES
     Dates: start: 20201003
  13. LUTEIN [Concomitant]
     Active Substance: LUTEIN
     Indication: Product used for unknown indication
     Dosage: 40 MG IN THE MORNING
     Dates: start: 20191108
  14. LUTEIN [Concomitant]
     Active Substance: LUTEIN
     Route: 048
  15. MAGNESIUM OXIDE [Concomitant]
     Active Substance: MAGNESIUM OXIDE
     Indication: Product used for unknown indication
     Dosage: (241.3 MG MAGNESIUM) TABLET, TAKE 1 TABLET (400 MG) BY MOUTH IN THE MORNING. - ORAL
     Route: 048
     Dates: start: 20231022
  16. ZAROXOLYN [Concomitant]
     Active Substance: METOLAZONE
     Indication: Product used for unknown indication
     Dosage: TAKE 2 TABLETS (5 MG) BY MOUTH 2 (TWO) TIMES A WEEK. 30 MINUTES PRIOR TO YOUR REGULAR DIURETIC - ORA
     Route: 048
     Dates: start: 20201003
  17. CENTRUM SILVER [ASCORBIC ACID;BETACAROTENE;BIOTIN;CALCIUM;CHROMIUM;COL [Concomitant]
     Indication: Product used for unknown indication
     Dosage: 0.4 MG-300 MCG- 250 MCG TABLET?CENTRUM SILVER ULTRA MEN^S ORALLY AS DIRECTED
     Route: 048
     Dates: start: 20201003
  18. K TAB [Concomitant]
     Indication: Product used for unknown indication
     Dosage: CR, TAKE 1 TABLET EVERY MORNING (DO NOT CRUSH, CHEW, OR SPLIT) ER
     Dates: start: 20240422
  19. ZINC GLUCONATE [Concomitant]
     Active Substance: ZINC GLUCONATE
     Indication: Product used for unknown indication
     Dosage: TAKE 1 TABLET (50 MG) BY MOUTH IN THE MORNING. - ORAL
     Route: 048
  20. VITAMIN E [Concomitant]
     Active Substance: .ALPHA.-TOCOPHEROL
     Indication: Product used for unknown indication
     Dosage: 100 UNIT= 1 CAP (S)
     Route: 048
  21. ZINC SULFATE [Concomitant]
     Active Substance: ZINC SULFATE
     Indication: Product used for unknown indication
     Route: 048

REACTIONS (19)
  - Pneumonia [Recovering/Resolving]
  - Atrial fibrillation [Recovering/Resolving]
  - Cardiac failure congestive [Recovering/Resolving]
  - Myelodysplastic syndrome [Recovering/Resolving]
  - Laboratory test abnormal [Recovering/Resolving]
  - Pleural effusion [Unknown]
  - Hypotension [Unknown]
  - Anaemia [Unknown]
  - Chronic kidney disease [Unknown]
  - Chronic obstructive pulmonary disease [Unknown]
  - Deep vein thrombosis [Unknown]
  - Rectal haemorrhage [Unknown]
  - Aortic aneurysm [Unknown]
  - Bundle branch block left [Unknown]
  - Heart failure with reduced ejection fraction [Unknown]
  - Septic shock [Unknown]
  - Productive cough [Unknown]
  - Hypotension [Unknown]
  - Blood urine present [Unknown]

NARRATIVE: CASE EVENT DATE: 20240611
